FAERS Safety Report 18236046 (Version 3)
Quarter: 2020Q4

REPORT INFORMATION
  Report Type: Spontaneous
  Country: US (occurrence: US)
  Receive Date: 20200906
  Receipt Date: 20201203
  Transmission Date: 20210113
  Serious: No
  Sender: FDA-Public Use
  Company Number: US-GLAXOSMITHKLINE-US2020AMR174331

PATIENT
  Sex: Female

DRUGS (3)
  1. ZEJULA [Suspect]
     Active Substance: NIRAPARIB
     Indication: OVARIAN CANCER
     Dosage: 300 MG, QD
     Route: 005
     Dates: start: 20200819
  2. ZEJULA [Suspect]
     Active Substance: NIRAPARIB
     Dosage: 200 MG, QD
     Dates: start: 20201201
  3. ZEJULA [Suspect]
     Active Substance: NIRAPARIB
     Dosage: 100 MG, QD (IN THE PM WITH FOOD)

REACTIONS (5)
  - Asthenia [Not Recovered/Not Resolved]
  - Heart rate increased [Recovered/Resolved]
  - Headache [Unknown]
  - Nausea [Recovering/Resolving]
  - Blood count abnormal [Not Recovered/Not Resolved]
